FAERS Safety Report 19513703 (Version 1)
Quarter: 2021Q3

REPORT INFORMATION
  Report Type: Report from Study
  Country: GB (occurrence: GB)
  Receive Date: 20210709
  Receipt Date: 20210709
  Transmission Date: 20211014
  Serious: Yes (Other)
  Sender: FDA-Public Use
  Company Number: NVSC2021GB150982

PATIENT
  Sex: Male

DRUGS (1)
  1. OMNITROPE [Suspect]
     Active Substance: SOMATROPIN
     Indication: GROWTH HORMONE DEFICIENCY
     Dosage: DOSE, FREQUENCY, ROUTE AS DIRECTED
     Route: 065

REACTIONS (3)
  - Product dose omission issue [Unknown]
  - Attention deficit hyperactivity disorder [Unknown]
  - Autism spectrum disorder [Unknown]
